FAERS Safety Report 7472269-0 (Version None)
Quarter: 2011Q1

REPORT INFORMATION
  Report Type: 
  Country: None (occurrence: None)
  Receive Date: 20110302
  Receipt Date: 20101022
  Transmission Date: 20110831
  Serious: Yes (Life-Threatening, Hospitalization, Other)
  Sender: FDA-Public Use
  Company Number: 163-21880-10081034

PATIENT
  Age: 85 Year
  Sex: Male
  Weight: 61.2356 kg

DRUGS (7)
  1. REVLIMID [Suspect]
     Indication: MYELOFIBROSIS
     Dosage: 10 MG, 1 IN 1 D, PO, 10 MG, DAILY X 21 Q 4WKS, PO
     Route: 048
     Dates: start: 20100624, end: 20100813
  2. REVLIMID [Suspect]
     Indication: ANAEMIA
     Dosage: 10 MG, 1 IN 1 D, PO, 10 MG, DAILY X 21 Q 4WKS, PO
     Route: 048
     Dates: start: 20100624, end: 20100813
  3. REVLIMID [Suspect]
     Indication: MYELOFIBROSIS
     Dosage: 10 MG, 1 IN 1 D, PO, 10 MG, DAILY X 21 Q 4WKS, PO
     Route: 048
     Dates: start: 20100914
  4. REVLIMID [Suspect]
     Indication: ANAEMIA
     Dosage: 10 MG, 1 IN 1 D, PO, 10 MG, DAILY X 21 Q 4WKS, PO
     Route: 048
     Dates: start: 20100914
  5. ALLOPURINOL [Concomitant]
  6. PREDNISONE [Concomitant]
  7. INDOCIN [Concomitant]

REACTIONS (4)
  - GOUT [None]
  - OEDEMA PERIPHERAL [None]
  - PELVIC HAEMATOMA [None]
  - DEEP VEIN THROMBOSIS [None]
